FAERS Safety Report 23458384 (Version 2)
Quarter: 2024Q1

REPORT INFORMATION
  Report Type: Spontaneous
  Country: JP (occurrence: JP)
  Receive Date: 20240130
  Receipt Date: 20240228
  Transmission Date: 20240409
  Serious: No
  Sender: FDA-Public Use
  Company Number: JP-OTSUKA-2024_001830

PATIENT
  Age: 37 Year
  Sex: Female

DRUGS (12)
  1. REXULTI [Suspect]
     Active Substance: BREXPIPRAZOLE
     Indication: Schizophrenia
     Dosage: 1 MG/DAY
     Route: 048
     Dates: start: 20240110, end: 20240116
  2. ABILIFY [Suspect]
     Active Substance: ARIPIPRAZOLE
     Indication: Schizophrenia
     Dosage: 400 MG/SHOT
     Route: 030
     Dates: start: 20230729
  3. ARIPIPRAZOLE [Concomitant]
     Active Substance: ARIPIPRAZOLE
     Indication: Restlessness
     Dosage: 3 MG/DAY, 6 TABLETS, 3XAFTER EACH MEAL/DAY
     Route: 048
  4. ARIPIPRAZOLE [Concomitant]
     Active Substance: ARIPIPRAZOLE
     Dosage: 1 TABLET, 1XORALLY TAKEN AS NEEDED AT THE TIME OF UNREST
     Route: 048
  5. NITRAZEPAM [Concomitant]
     Active Substance: NITRAZEPAM
     Indication: Product used for unknown indication
     Dosage: 10 MG/DAY, 2 TABLETS, 1XBEFORE BEDTIME/DAY
     Route: 048
  6. BROTIZOLAM [Concomitant]
     Active Substance: BROTIZOLAM
     Indication: Product used for unknown indication
     Dosage: 0.25 MG/DAY, 1 TABLET, 1XBEFORE BEDTIME/DAY
     Route: 048
  7. BIFIDOBACTERIUM BIFIDUM;LACTOMIN [Concomitant]
     Indication: Product used for unknown indication
     Dosage: 3 TABLETS, 3XAFTER EACH MEAL/DAY
     Route: 048
  8. TRIHEXYPHENIDYL HYDROCHLORIDE [Concomitant]
     Active Substance: TRIHEXYPHENIDYL HYDROCHLORIDE
     Indication: Product used for unknown indication
     Dosage: 6 MG/DAY, 3 TABLETS, 3XAFTER EACH MEAL/DAY
     Route: 048
  9. BIO-THREE [Concomitant]
     Active Substance: HERBALS
     Indication: Product used for unknown indication
     Dosage: 3 TABLETS, 3XAFTER EACH MEAL/DAY
     Route: 048
  10. LORAZEPAM [Concomitant]
     Active Substance: LORAZEPAM
     Indication: Product used for unknown indication
     Dosage: 1 MG/DAY, 2 TABLETS, 2XAFTER BREAKFAST AND DINNER/DAY
     Route: 048
  11. IBUPROFEN [Concomitant]
     Active Substance: IBUPROFEN
     Indication: Headache
     Dosage: 200 MG/DAY, 1 TABLET, 1XORALLY TAKEN AS NEEDED AT THE TIME OF HEADACHE
     Route: 048
  12. SENNOSIDES A AND B [Concomitant]
     Active Substance: SENNOSIDES A AND B
     Indication: Constipation
     Dosage: 1 TABLET, 1XORALLY TAKEN AS NEEDED AT THE TIME OF CONSTIPATION
     Route: 048

REACTIONS (3)
  - Hypoaesthesia [Recovered/Resolved]
  - Myalgia [Recovered/Resolved]
  - Treatment failure [Unknown]

NARRATIVE: CASE EVENT DATE: 20240109
